FAERS Safety Report 13404032 (Version 1)
Quarter: 2017Q2

REPORT INFORMATION
  Report Type: Spontaneous
  Country: US (occurrence: US)
  Receive Date: 20170405
  Receipt Date: 20170405
  Transmission Date: 20170830
  Serious: No
  Sender: FDA-Public Use
  Company Number: None

PATIENT

DRUGS (2)
  1. CHLORHEXIDINE GLUCONATE CHLORHEXIDINE MOUTH WASH 0.2% [Suspect]
     Active Substance: CHLORHEXIDINE GLUCONATE
     Dosage: LIQUID PO UNIT DOSE CUP
     Route: 048
  2. LIDOCAINE VISCOUS [Suspect]
     Active Substance: LIDOCAINE HYDROCHLORIDE
     Dosage: UNIT DOSE CUP

REACTIONS (1)
  - Product label confusion [None]
